FAERS Safety Report 18910070 (Version 1)
Quarter: 2021Q1

REPORT INFORMATION
  Report Type: Spontaneous
  Country: US (occurrence: US)
  Receive Date: 20210218
  Receipt Date: 20210218
  Transmission Date: 20210420
  Serious: No
  Sender: FDA-Public Use
  Company Number: None

PATIENT
  Age: 43 Year
  Sex: Male
  Weight: 90 kg

DRUGS (3)
  1. OMEGA MAN VITAMIN SUPPLEMENTS [Concomitant]
  2. MIDRIN AND PERCOSET [Concomitant]
  3. EMGALITY [Suspect]
     Active Substance: GALCANEZUMAB-GNLM
     Indication: MIGRAINE
     Dosage: ?          QUANTITY:2 INJECTION(S);OTHER FREQUENCY:2 INJECTIONS;?
     Route: 058
     Dates: start: 20210217

REACTIONS (7)
  - Nasopharyngitis [None]
  - Fatigue [None]
  - Hypoaesthesia [None]
  - Feeling abnormal [None]
  - Illness [None]
  - Impaired work ability [None]
  - Lethargy [None]

NARRATIVE: CASE EVENT DATE: 20210217
